FAERS Safety Report 5366346-8 (Version None)
Quarter: 2007Q2

REPORT INFORMATION
  Report Type: 
  Country: None (occurrence: None)
  Receive Date: 20070622
  Receipt Date: 20070612
  Transmission Date: 20071010
  Serious: Yes (Hospitalization)
  Sender: FDA-Public Use
  Company Number: FR-JNJFOC-20070602962

PATIENT
  Age: 68 Year
  Sex: Female
  Weight: 60 kg

DRUGS (10)
  1. REMICADE [Suspect]
     Indication: UVEITIS
     Route: 042
  2. COLCHICINE [Suspect]
     Indication: DRUG USE FOR UNKNOWN INDICATION
  3. ACTONEL [Concomitant]
     Indication: OSTEOPOROSIS
     Route: 048
  4. ZOLPIDEM [Concomitant]
     Indication: SLEEP DISORDER
     Route: 048
  5. PREVISCAN [Concomitant]
     Indication: CARDIAC OPERATION
     Route: 048
  6. CORTANCYL [Concomitant]
     Indication: UVEITIS
     Route: 048
  7. CIPRALAN [Concomitant]
     Indication: ARRHYTHMIA
     Route: 048
  8. DIGITALINE NATIVELLE [Concomitant]
  9. DIFFUL [Concomitant]
  10. COTAREG [Concomitant]

REACTIONS (4)
  - ABDOMINAL PAIN [None]
  - TUBERCULOSIS [None]
  - VOMITING [None]
  - WEIGHT DECREASED [None]
